FAERS Safety Report 17220648 (Version 4)
Quarter: 2020Q1

REPORT INFORMATION
  Report Type: Spontaneous
  Country: CN (occurrence: CN)
  Receive Date: 20191231
  Receipt Date: 20200324
  Transmission Date: 20200409
  Serious: Yes (Life-Threatening, Hospitalization)
  Sender: FDA-Public Use
  Company Number: CN-CELGENEUS-CHN-20190603272

PATIENT
  Age: 67 Year
  Sex: Male
  Weight: 72 kg

DRUGS (20)
  1. OXYGEN. [Concomitant]
     Active Substance: OXYGEN
     Indication: CHEST DISCOMFORT
     Dosage: DOSE NOT PROVIDED
     Route: 055
     Dates: start: 20190723
  2. SOLU-MEDROL [Concomitant]
     Active Substance: METHYLPREDNISOLONE SODIUM SUCCINATE
     Indication: ANTIINFLAMMATORY THERAPY
     Dosage: 240 MILLIGRAM
     Route: 041
     Dates: start: 20190725, end: 20190726
  3. SMZ [Concomitant]
     Active Substance: SULFAMETHOXAZOLE\TRIMETHOPRIM
     Indication: ANTIINFLAMMATORY THERAPY
     Dosage: 4500 MILLIGRAM
     Route: 065
     Dates: start: 20190723
  4. COMPOUND EOSINOPHIL LACTOBACILLUS [Concomitant]
     Indication: PRODUCT USED FOR UNKNOWN INDICATION
     Route: 065
  5. HUMAN IMMUNOGLOBULIN [Concomitant]
     Route: 041
     Dates: start: 20190723
  6. LEUCOGEN [Concomitant]
     Active Substance: LEUCOGEN
     Indication: PRODUCT USED FOR UNKNOWN INDICATION
     Route: 065
  7. SMZ [Concomitant]
     Active Substance: SULFAMETHOXAZOLE\TRIMETHOPRIM
     Route: 041
     Dates: start: 20190723
  8. SOLU-MEDROL [Concomitant]
     Active Substance: METHYLPREDNISOLONE SODIUM SUCCINATE
     Dosage: 160 MILLIGRAM
     Route: 041
     Dates: start: 20190727
  9. MOSAPRIDE CITRATE [Concomitant]
     Active Substance: MOSAPRIDE CITRATE
     Indication: PRODUCT USED FOR UNKNOWN INDICATION
     Route: 065
  10. BGB-A317/TISLELIZUMAB [Suspect]
     Active Substance: TISLELIZUMAB
     Indication: LUNG NEOPLASM MALIGNANT
     Dosage: 200 MILLIGRAM
     Route: 041
     Dates: start: 20190221, end: 20190531
  11. CASPOFUNGIN ACETATE. [Concomitant]
     Active Substance: CASPOFUNGIN ACETATE
     Indication: ANTIINFLAMMATORY THERAPY
     Route: 041
  12. HUMAN IMMUNOGLOBULIN [Concomitant]
     Indication: ANTIINFLAMMATORY THERAPY
     Dosage: 1500 MILLIGRAM
     Route: 041
     Dates: start: 20190723
  13. MEGESTROL ACETATE. [Concomitant]
     Active Substance: MEGESTROL ACETATE
     Indication: PRODUCT USED FOR UNKNOWN INDICATION
     Route: 065
  14. ABRAXANE [Suspect]
     Active Substance: PACLITAXEL
     Indication: LUNG NEOPLASM MALIGNANT
     Dosage: 180 MILLIGRAM
     Route: 041
     Dates: start: 20190221, end: 20190531
  15. CASPOFUNGIN ACETATE. [Concomitant]
     Active Substance: CASPOFUNGIN ACETATE
     Route: 041
     Dates: start: 20190723
  16. IBUPROFEN. [Concomitant]
     Active Substance: IBUPROFEN
     Indication: PYREXIA
     Route: 065
     Dates: start: 20190525, end: 20190526
  17. BLOOD ENRICHMENT NUTRI GEL [Concomitant]
     Indication: PRODUCT USED FOR UNKNOWN INDICATION
     Route: 065
  18. RECOMBINANT HUMAN ERYTHROPOIETIN [Concomitant]
     Active Substance: ERYTHROPOIETIN
     Indication: PRODUCT USED FOR UNKNOWN INDICATION
     Route: 065
  19. CARBOPLATIN. [Suspect]
     Active Substance: CARBOPLATIN
     Indication: LUNG NEOPLASM MALIGNANT
     Dosage: 30.8571 MILLIGRAM
     Route: 041
     Dates: start: 20190221
  20. PIPHENIDONE [Concomitant]
     Indication: ANTIINFLAMMATORY THERAPY
     Route: 065
     Dates: start: 20190727

REACTIONS (1)
  - Interstitial lung disease [Recovering/Resolving]

NARRATIVE: CASE EVENT DATE: 20190528
